FAERS Safety Report 9985223 (Version 2)
Quarter: 2014Q1

REPORT INFORMATION
  Report Type: Spontaneous
  Country: JP (occurrence: JP)
  Receive Date: 20140307
  Receipt Date: 20140307
  Transmission Date: 20141002
  Serious: Yes (Hospitalization)
  Sender: FDA-Public Use
  Company Number: PHHY2014JP013632

PATIENT
  Sex: Male

DRUGS (3)
  1. COMTAN [Suspect]
     Indication: PARKINSON^S DISEASE
     Dosage: 300 MG, DAILY
     Route: 048
  2. MADOPAR [Concomitant]
     Dosage: UNK UKN, UNK
     Route: 048
  3. MENESIT [Concomitant]
     Dosage: 300 MG, UNK
     Route: 048

REACTIONS (3)
  - Fracture [Unknown]
  - Chromaturia [Not Recovered/Not Resolved]
  - Sputum discoloured [Recovered/Resolved]
